FAERS Safety Report 6580213-3 (Version None)
Quarter: 2010Q1

REPORT INFORMATION
  Report Type: 
  Country: None (occurrence: None)
  Receive Date: 20100203
  Receipt Date: 20100125
  Transmission Date: 20100710
  Serious: Yes (Other)
  Sender: FDA-Public Use
  Company Number: 100120-0000078

PATIENT
  Age: 6 Day
  Sex: Female

DRUGS (1)
  1. INDOCIN [Suspect]
     Indication: PATENT DUCTUS ARTERIOSUS
     Dosage: IV
     Route: 042

REACTIONS (3)
  - ACUTE PULMONARY OEDEMA [None]
  - OLIGURIA [None]
  - PULMONARY HYPERTENSION [None]
